FAERS Safety Report 11703957 (Version 1)
Quarter: 2015Q4

REPORT INFORMATION
  Report Type: Spontaneous
  Country: US (occurrence: None)
  Receive Date: 20151105
  Receipt Date: 20151105
  Transmission Date: 20160304
  Serious: Yes (Other)
  Sender: FDA-Public Use
  Company Number: None

PATIENT
  Age: 38 Year
  Sex: Female
  Weight: 92.99 kg

DRUGS (2)
  1. SUCCINYLCHOLINE UNKNOWN MEDICAL RECORDS [Suspect]
     Active Substance: SUCCINYLCHOLINE
     Indication: SURGERY
     Dosage: UNKJNOWN - MEDICAL RECORDS, ONCE DURING SURGERY, INTO A VEIN
     Dates: start: 20151022, end: 20151022
  2. IBUPROFEN. [Concomitant]
     Active Substance: IBUPROFEN

REACTIONS (13)
  - Somnolence [None]
  - Pain in jaw [None]
  - Myalgia [None]
  - Musculoskeletal pain [None]
  - Vomiting [None]
  - Impaired driving ability [None]
  - Neck pain [None]
  - Limb discomfort [None]
  - Impaired work ability [None]
  - Abnormal dreams [None]
  - Headache [None]
  - Nausea [None]
  - Dizziness [None]

NARRATIVE: CASE EVENT DATE: 20151104
